FAERS Safety Report 10153866 (Version 6)
Quarter: 2014Q2

REPORT INFORMATION
  Report Type: Spontaneous
  Country: JP (occurrence: JP)
  Receive Date: 20140506
  Receipt Date: 20140623
  Transmission Date: 20141212
  Serious: Yes (Hospitalization)
  Sender: FDA-Public Use
  Company Number: JP-BRISTOL-MYERS SQUIBB COMPANY-20693628

PATIENT
  Age: 69 Year
  Sex: Female

DRUGS (15)
  1. ABILIFY [Suspect]
     Indication: HALLUCINATION
     Route: 048
     Dates: start: 20140328, end: 20140410
  2. ABILIFY [Suspect]
     Indication: PARANOIA
     Route: 048
     Dates: start: 20140328, end: 20140410
  3. ABILIFY POWDER 1% [Suspect]
     Indication: PARANOIA
     Dosage: DOSE REDUCED TO 9MG/DAY IN TABS FORM
     Route: 048
     Dates: start: 20140205, end: 20140219
  4. ABILIFY POWDER 1% [Suspect]
     Indication: HALLUCINATION
     Dosage: DOSE REDUCED TO 9MG/DAY IN TABS FORM
     Route: 048
     Dates: start: 20140205, end: 20140219
  5. ABILIFY TABS [Suspect]
     Indication: PARANOIA
     Dosage: DOSE REDUCED TO 6MG/DAY ON:28FEB2014-27MAR2014,28DAY?3MG/DAY
     Route: 048
     Dates: start: 20140220, end: 20140327
  6. ABILIFY TABS [Suspect]
     Indication: HALLUCINATION
     Dosage: DOSE REDUCED TO 6MG/DAY ON:28FEB2014-27MAR2014,28DAY?3MG/DAY
     Route: 048
     Dates: start: 20140220, end: 20140327
  7. VESICARE [Suspect]
     Indication: POLLAKIURIA
     Dosage: DOSE REDUCED TO 1.25MG?28MAR2014-8APR2014,12DAY?09APR2014-10APR2014,2DAY
     Route: 048
     Dates: start: 20140328, end: 20140410
  8. TRICLOFOS SODIUM [Concomitant]
     Dosage: SYRUP
  9. MENESIT [Concomitant]
     Dates: start: 20030214
  10. COMTAN [Concomitant]
     Dates: start: 20100202
  11. GASMOTIN [Concomitant]
     Dates: start: 20080708
  12. MAGMITT [Concomitant]
     Dates: start: 20090519
  13. AMITIZA [Concomitant]
     Dates: start: 20130121
  14. ROZEREM [Concomitant]
     Dates: start: 20130419
  15. TRICLOFOS SODIUM [Concomitant]
     Dosage: 1DF: 10%
     Dates: start: 20140210

REACTIONS (4)
  - Urinary retention [Recovered/Resolved]
  - Off label use [Unknown]
  - Herpes zoster [Unknown]
  - Dysuria [None]
